FAERS Safety Report 19864847 (Version 1)
Quarter: 2021Q3

REPORT INFORMATION
  Report Type: Spontaneous
  Country: KR (occurrence: KR)
  Receive Date: 20210922
  Receipt Date: 20210922
  Transmission Date: 20211014
  Serious: Yes (Other)
  Sender: FDA-Public Use
  Company Number: KR-VIFOR (INTERNATIONAL) INC.-VIT-2021-07428

PATIENT
  Age: 74 Year
  Sex: Female

DRUGS (4)
  1. HYDROCORTISONE. [Concomitant]
     Active Substance: HYDROCORTISONE
     Route: 065
  2. OLOPATADINE. [Concomitant]
     Active Substance: OLOPATADINE
     Indication: CUTANEOUS VASCULITIS
     Route: 065
  3. METHYLPREDNISOLONE. [Concomitant]
     Active Substance: METHYLPREDNISOLONE
     Indication: CUTANEOUS VASCULITIS
     Route: 065
  4. MIRCERA [Suspect]
     Active Substance: METHOXY POLYETHYLENE GLYCOL-EPOETIN BETA
     Indication: ANAEMIA
     Route: 058

REACTIONS (2)
  - Palpable purpura [Unknown]
  - Cutaneous vasculitis [Recovering/Resolving]
